FAERS Safety Report 18333555 (Version 1)
Quarter: 2020Q4

REPORT INFORMATION
  Report Type: Report from Study
  Country: BR (occurrence: BR)
  Receive Date: 20201001
  Receipt Date: 20201001
  Transmission Date: 20210113
  Serious: Yes (Other)
  Sender: FDA-Public Use
  Company Number: NVSC2020BR047826

PATIENT
  Age: 63 Year
  Sex: Female

DRUGS (4)
  1. SANDOSTATIN [Suspect]
     Active Substance: OCTREOTIDE ACETATE
     Indication: PRODUCT USED FOR UNKNOWN INDICATION
     Dosage: UNK
     Route: 065
     Dates: start: 202008
  2. AMOXICILLIN AND CLAVULANATE POTASSIUM [Suspect]
     Active Substance: AMOXICILLIN\CLAVULANATE POTASSIUM
     Indication: OROPHARYNGEAL DISCOMFORT
     Dosage: UNK
     Route: 065
  3. SANDOSTATIN [Suspect]
     Active Substance: OCTREOTIDE ACETATE
     Dosage: UNK
     Route: 065
     Dates: start: 20200901
  4. SANDOSTATIN [Suspect]
     Active Substance: OCTREOTIDE ACETATE

REACTIONS (15)
  - Suspected COVID-19 [Unknown]
  - Product odour abnormal [Unknown]
  - Product quality issue [Unknown]
  - Feeling abnormal [Unknown]
  - Feeling hot [Not Recovered/Not Resolved]
  - Syncope [Unknown]
  - Depression [Unknown]
  - Fatigue [Unknown]
  - Pain [Unknown]
  - Heart valve stenosis [Not Recovered/Not Resolved]
  - Malaise [Recovered/Resolved]
  - Gastrointestinal neoplasm [Unknown]
  - Oropharyngeal neoplasm [Unknown]
  - Gallbladder neoplasm [Unknown]
  - Rheumatic disorder [Unknown]

NARRATIVE: CASE EVENT DATE: 201906
